FAERS Safety Report 5501390-9 (Version None)
Quarter: 2007Q4

REPORT INFORMATION
  Report Type: 
  Country: None (occurrence: None)
  Receive Date: 20071026
  Receipt Date: 20071016
  Transmission Date: 20080405
  Serious: Yes (Life-Threatening)
  Sender: FDA-Public Use
  Company Number: GXKR2007GB08922

PATIENT
  Age: 58 Year
  Sex: Male

DRUGS (6)
  1. ASPIRIN [Suspect]
     Indication: INTERMITTENT CLAUDICATION
     Dosage: 75 MG, QD, ORAL
     Route: 048
     Dates: end: 20051228
  2. CLOPIDOGREL [Suspect]
     Indication: ILIAC ARTERY STENOSIS
     Dosage: 75 MG, QD, ORAL
     Route: 048
     Dates: end: 20051228
  3. CODEINE PHOSPHATE AND ACETAMINOPHEN [Concomitant]
  4. ACETAMINOPHEN [Concomitant]
  5. PERINDOPRIL ERBUMINE [Concomitant]
  6. SIMVASTATIN [Concomitant]

REACTIONS (3)
  - DYSPEPSIA [None]
  - DYSPNOEA [None]
  - HAEMOGLOBIN DECREASED [None]
